FAERS Safety Report 5873339-0 (Version None)
Quarter: 2008Q3

REPORT INFORMATION
  Report Type: 
  Country: None (occurrence: None)
  Receive Date: 20080903
  Receipt Date: 20080828
  Transmission Date: 20090109
  Serious: Yes (Hospitalization)
  Sender: FDA-Public Use
  Company Number: 2008SP012435

PATIENT
  Age: 61 Year
  Sex: Male
  Weight: 46 kg

DRUGS (8)
  1. PEG-INTRON [Suspect]
     Indication: HEPATITIS C
     Dosage: 80 MCG; QW; SC, 60 MCG; QW; SC
     Route: 058
     Dates: start: 20080407, end: 20080616
  2. PEG-INTRON [Suspect]
     Indication: HEPATITIS C
     Dosage: 80 MCG; QW; SC, 60 MCG; QW; SC
     Route: 058
     Dates: start: 20080701
  3. REBETOL [Suspect]
     Indication: HEPATITIS C
     Dosage: 600 MG; QD; PO, 400 MG; QD; PO
     Route: 048
     Dates: start: 20080407, end: 20080618
  4. REBETOL [Suspect]
     Indication: HEPATITIS C
     Dosage: 600 MG; QD; PO, 400 MG; QD; PO
     Route: 048
     Dates: start: 20080701
  5. SILECE [Concomitant]
  6. LENDORMIN [Concomitant]
  7. SEROQUEL [Concomitant]
  8. DESYREL [Concomitant]

REACTIONS (4)
  - ANOREXIA [None]
  - DIARRHOEA [None]
  - MALAISE [None]
  - TREMOR [None]
